FAERS Safety Report 4853103-1 (Version None)
Quarter: 2005Q4

REPORT INFORMATION
  Report Type: 
  Country: None (occurrence: None)
  Receive Date: 20051212
  Receipt Date: 20051128
  Transmission Date: 20060501
  Serious: Yes (Other)
  Sender: FDA-Public Use
  Company Number: US_0507120041

PATIENT
  Age: 74 Year
  Weight: 74.8 kg

DRUGS (26)
  1. ZYPREXA [Suspect]
     Indication: DEMENTIA
     Dosage: 2.5 MG, EACH EVENING, ORAL
     Route: 048
     Dates: start: 20040101, end: 20040615
  2. PANCREAS (PANCRELIPASE) [Concomitant]
  3. NEURONTIN [Concomitant]
  4. SYNTHROID [Concomitant]
  5. ZOLOFT [Concomitant]
  6. K-DUR 10 [Concomitant]
  7. LIPITOR [Concomitant]
  8. TOPROL-XL [Concomitant]
  9. COZAAR [Concomitant]
  10. FUROSEMIDE [Concomitant]
  11. MIRAPEX [Concomitant]
  12. NITROGLYCERIN [Concomitant]
  13. DARVOCET-N 100 [Concomitant]
  14. COUMADIN [Concomitant]
  15. VITAMIN B COMPLEX (BECOTIN) (VITAMIN B COMPLEX (BECOTIN)) [Concomitant]
  16. OSCAL (CALCIUM CARBONATE) [Concomitant]
  17. IRON (IRON) [Concomitant]
  18. COMBIVENT /GFR/ (IPRATROPIUM BROMIDE, SALBUTAMOL SULFATE) [Concomitant]
  19. ADVAIR DISKUS 100/50 [Concomitant]
  20. ATROVENT [Concomitant]
  21. XOPENEX [Concomitant]
  22. SINGULAIR ^MERCK^ (MONTELUKAST SODIUM) [Concomitant]
  23. ARICEPT /JPN/ (DONEPEZIL HYDROCHLORIDE) [Concomitant]
  24. ZANAFLEX [Concomitant]
  25. LASIX [Concomitant]
  26. LEVAQUIN [Concomitant]

REACTIONS (2)
  - DIABETES MELLITUS [None]
  - PNEUMONIA [None]
